FAERS Safety Report 18434565 (Version 1)
Quarter: 2020Q4

REPORT INFORMATION
  Report Type: Spontaneous
  Country: JP (occurrence: JP)
  Receive Date: 20201028
  Receipt Date: 20201028
  Transmission Date: 20210114
  Serious: Yes (Other)
  Sender: FDA-Public Use
  Company Number: JP-AMGEN-JPNSP2020145727

PATIENT
  Age: 83 Year
  Sex: Female

DRUGS (3)
  1. EVENITY [Suspect]
     Active Substance: ROMOSOZUMAB-AQQG
     Indication: OSTEOPOROSIS
     Dosage: 210 MILLIGRAM
     Route: 058
     Dates: start: 20190603
  2. LENADEX [Concomitant]
     Active Substance: DEXAMETHASONE ACETATE
     Indication: ADVERSE EVENT
     Dosage: UNK
  3. REVLIMID [Concomitant]
     Active Substance: LENALIDOMIDE
     Indication: ADVERSE EVENT
     Dosage: UNK

REACTIONS (2)
  - Thoracic vertebral fracture [Recovering/Resolving]
  - Fall [Unknown]

NARRATIVE: CASE EVENT DATE: 202001
